FAERS Safety Report 16201522 (Version 1)
Quarter: 2019Q2

REPORT INFORMATION
  Report Type: Report from Study
  Country: None (occurrence: AU)
  Receive Date: 20190416
  Receipt Date: 20190416
  Transmission Date: 20190711
  Serious: Yes (Other)
  Sender: FDA-Public Use
  Company Number: AU-ABBVIE-19K-008-2731233-00

PATIENT
  Sex: Female

DRUGS (2)
  1. HUMIRA [Suspect]
     Active Substance: ADALIMUMAB
     Indication: ANKYLOSING SPONDYLITIS
     Route: 058
  2. IRON [Suspect]
     Active Substance: IRON
     Indication: MINERAL SUPPLEMENTATION
     Route: 065

REACTIONS (8)
  - Fatigue [Recovering/Resolving]
  - Poor quality sleep [Recovering/Resolving]
  - Constipation [Unknown]
  - Stress at work [Not Recovered/Not Resolved]
  - Abdominal pain upper [Unknown]
  - Epilepsy [Unknown]
  - Family stress [Not Recovered/Not Resolved]
  - Blood iron decreased [Unknown]

NARRATIVE: CASE EVENT DATE: 2018
